FAERS Safety Report 4292923-1 (Version None)
Quarter: 2004Q1

REPORT INFORMATION
  Report Type: 
  Country: None (occurrence: None)
  Receive Date: 20040212
  Receipt Date: 20030728
  Transmission Date: 20041129
  Serious: Yes (Other)
  Sender: FDA-Public Use
  Company Number: US-GLAXOSMITHKLINE-A0418432A

PATIENT
  Age: 51 Year
  Sex: Female

DRUGS (4)
  1. PAXIL [Suspect]
     Indication: DEPRESSION
     Dosage: 20MG PER DAY
     Route: 048
     Dates: end: 20030725
  2. CLONAZEPAM [Concomitant]
  3. HORMONE REPLACEMENT THERAPY [Concomitant]
  4. MULTIVITAMIN [Concomitant]

REACTIONS (1)
  - DRUG WITHDRAWAL SYNDROME [None]
